FAERS Safety Report 5288553-5 (Version None)
Quarter: 2007Q2

REPORT INFORMATION
  Report Type: 
  Country: None (occurrence: None)
  Receive Date: 20070405
  Receipt Date: 20070221
  Transmission Date: 20071010
  Serious: No
  Sender: FDA-Public Use
  Company Number: US-JNJFOC-20070105977

PATIENT
  Sex: Female
  Weight: 60.33 kg

DRUGS (5)
  1. INVEGA [Suspect]
     Indication: SCHIZOPHRENIA
     Route: 048
  2. INVEGA [Suspect]
     Indication: HALLUCINATION, AUDITORY
     Route: 048
  3. LEXAPRO [Concomitant]
     Route: 048
  4. KLONOPIN [Concomitant]
     Route: 048
  5. AMBIEN [Concomitant]
     Route: 048

REACTIONS (7)
  - ABASIA [None]
  - DYSARTHRIA [None]
  - GAIT DISTURBANCE [None]
  - HOT FLUSH [None]
  - HYPERHIDROSIS [None]
  - MENTAL IMPAIRMENT [None]
  - OEDEMA PERIPHERAL [None]
